FAERS Safety Report 11103031 (Version 2)
Quarter: 2015Q3

REPORT INFORMATION
  Report Type: Spontaneous
  Country: US (occurrence: US)
  Receive Date: 20150511
  Receipt Date: 20150724
  Transmission Date: 20151125
  Serious: Yes (Death)
  Sender: FDA-Public Use
  Company Number: US-PFIZER INC-2015104641

PATIENT
  Age: 74 Year
  Sex: Female
  Weight: 64 kg

DRUGS (2)
  1. SUTENT [Suspect]
     Active Substance: SUNITINIB MALATE
     Indication: RENAL CELL CARCINOMA
     Dosage: 50 MG, CYCLIC (DAILY, 4 WEEKS ON 2 WEEKS REST)
     Route: 048
  2. CABOZANTINIB [Concomitant]
     Active Substance: CABOZANTINIB
     Dosage: UNK

REACTIONS (1)
  - Death [Fatal]
